FAERS Safety Report 4300428-4 (Version None)
Quarter: 2004Q1

REPORT INFORMATION
  Report Type: 
  Country: None (occurrence: None)
  Receive Date: 20040218
  Receipt Date: 20040203
  Transmission Date: 20041129
  Serious: Yes (Other)
  Sender: FDA-Public Use
  Company Number: DSK-2004-00913

PATIENT
  Age: 63 Year
  Sex: Female

DRUGS (4)
  1. SALIGREN (CEVIMELINE HYDROCHLORIDE HYDRATE) [Suspect]
     Indication: SJOGREN'S SYNDROME
     Dosage: 60 MG (30 MG, 2 IN 1 D)
     Route: 048
     Dates: start: 20021122, end: 20030117
  2. JUVELA N (TOCOPHERYL NICOTINATE) [Concomitant]
  3. EMPYNASE P (PRONASE) [Concomitant]
  4. ZANTAC [Concomitant]

REACTIONS (1)
  - HEPATITIS [None]
